FAERS Safety Report 10149109 (Version 1)
Quarter: 2014Q2

REPORT INFORMATION
  Report Type: Spontaneous
  Country: US (occurrence: None)
  Receive Date: 20140430
  Receipt Date: 20140430
  Transmission Date: 20141212
  Serious: Yes (Life-Threatening, Other)
  Sender: FDA-Public Use
  Company Number: 001715794A

PATIENT
  Age: 18 Year
  Sex: Female

DRUGS (3)
  1. PROACTIV RENEWING CLEANSER [Suspect]
     Indication: ACNE
     Dosage: TWICE DAILY DERMAL
     Dates: start: 201305
  2. PROACTIV REPAIRING TREATMENT [Suspect]
     Indication: ACNE
     Dosage: TWICE DAILY DERMAL
     Dates: start: 201305
  3. PROACTIV DARK SPOT CORRECTOR [Suspect]
     Dosage: TWICE DAILY DERMAL
     Dates: start: 201405

REACTIONS (2)
  - Anaphylactic reaction [None]
  - Polycystic ovaries [None]
